FAERS Safety Report 5636312-3 (Version None)
Quarter: 2008Q1

REPORT INFORMATION
  Report Type: 
  Country: None (occurrence: None)
  Receive Date: 20080225
  Receipt Date: 20080219
  Transmission Date: 20080703
  Serious: Yes (Other)
  Sender: FDA-Public Use
  Company Number: ES-BRISTOL-MYERS SQUIBB COMPANY-14081392

PATIENT
  Age: 49 Year
  Sex: Male

DRUGS (7)
  1. ATAZANAVIR SULFATE [Interacting]
  2. STAVUDINE [Suspect]
  3. TACROLIMUS [Interacting]
  4. CYCLOSPORINE [Suspect]
  5. MYCOPHENOLATE SODIUM [Suspect]
  6. LAMIVUDINE [Concomitant]
  7. ABACAVIR [Concomitant]

REACTIONS (2)
  - DRUG INTERACTION [None]
  - RENAL FAILURE [None]
